FAERS Safety Report 9520440 (Version 2)
Quarter: 2013Q4

REPORT INFORMATION
  Report Type: Spontaneous
  Country: IE (occurrence: IE)
  Receive Date: 20130912
  Receipt Date: 20131007
  Transmission Date: 20140711
  Serious: Yes (Hospitalization, Other)
  Sender: FDA-Public Use
  Company Number: IE-AMGEN-IRLSP2013064006

PATIENT
  Age: 75 Year
  Sex: Female
  Weight: 60 kg

DRUGS (1)
  1. PROLIA [Suspect]
     Indication: OSTEOPOROSIS
     Dosage: 60 MG, Q6MO
     Route: 030
     Dates: start: 20130311

REACTIONS (8)
  - Respiratory failure [Recovered/Resolved]
  - Cerebrovascular accident [Recovering/Resolving]
  - Pneumonia [Unknown]
  - Atrial fibrillation [Unknown]
  - Hypoxia [Unknown]
  - Toxicity to various agents [Unknown]
  - Epistaxis [Unknown]
  - Incorrect route of drug administration [Unknown]
